FAERS Safety Report 24255333 (Version 2)
Quarter: 2024Q4

REPORT INFORMATION
  Report Type: Spontaneous
  Country: US (occurrence: US)
  Receive Date: 20240827
  Receipt Date: 20241029
  Transmission Date: 20250114
  Serious: No
  Sender: BIOCRYST PHARMACEUTICALS
  Company Number: US-BIOCRYST PHARMACEUTICALS, INC.-2024BCR00806

PATIENT

DRUGS (6)
  1. ORLADEYO [Suspect]
     Active Substance: BEROTRALSTAT HYDROCHLORIDE
     Indication: Hereditary angioedema
     Dosage: 110 MG, QD
     Route: 048
     Dates: start: 20240725
  2. ORLADEYO [Suspect]
     Active Substance: BEROTRALSTAT HYDROCHLORIDE
     Dosage: DECREASED
     Dates: start: 2024, end: 2024
  3. ORLADEYO [Suspect]
     Active Substance: BEROTRALSTAT HYDROCHLORIDE
     Dosage: 110 MG, QD
     Route: 048
     Dates: start: 2024
  4. EPIPEN [Concomitant]
     Active Substance: EPINEPHRINE
     Dosage: UNK
  5. MEDROL [Concomitant]
     Active Substance: METHYLPREDNISOLONE
     Indication: Hereditary angioedema
     Dosage: UNK, PRN
  6. VITAMINS [Concomitant]
     Active Substance: VITAMINS
     Dosage: UNK

REACTIONS (10)
  - Constipation [Unknown]
  - Gastrointestinal sounds abnormal [Not Recovered/Not Resolved]
  - Dizziness [Unknown]
  - Taste disorder [Recovered/Resolved]
  - Oral mucosal eruption [Recovering/Resolving]
  - Nasal dryness [Unknown]
  - Fatigue [Unknown]
  - Abdominal discomfort [Unknown]
  - Ocular discomfort [Unknown]
  - Intentional product misuse [Recovered/Resolved]

NARRATIVE: CASE EVENT DATE: 20240101
